FAERS Safety Report 6997220-9 (Version None)
Quarter: 2010Q3

REPORT INFORMATION
  Report Type: 
  Country: None (occurrence: None)
  Receive Date: 20100918
  Receipt Date: 20090928
  Transmission Date: 20110219
  Serious: No
  Sender: FDA-Public Use
  Company Number: US-WYE-H11243209

PATIENT
  Sex: Male

DRUGS (4)
  1. PRISTIQ [Suspect]
     Indication: DEPRESSION
     Route: 048
     Dates: start: 20090925
  2. PRISTIQ [Suspect]
     Indication: ANXIETY
  3. SIMVASTATIN [Concomitant]
  4. KLONOPIN [Concomitant]

REACTIONS (4)
  - AGITATION [None]
  - DEPRESSED MOOD [None]
  - INSOMNIA [None]
  - IRRITABILITY [None]
